FAERS Safety Report 11795239 (Version 1)
Quarter: 2015Q4

REPORT INFORMATION
  Report Type: Spontaneous
  Country: US (occurrence: US)
  Receive Date: 20151202
  Receipt Date: 20151202
  Transmission Date: 20160305
  Serious: Yes (Other)
  Sender: FDA-Public Use
  Company Number: US-009507513-1504USA015773

PATIENT
  Age: 63 Year
  Sex: Male

DRUGS (1)
  1. CUBICIN [Suspect]
     Active Substance: DAPTOMYCIN
     Indication: STAPHYLOCOCCAL SEPSIS
     Dosage: DAILY DOSE UNKNOWN
     Route: 042
     Dates: start: 20110207

REACTIONS (2)
  - Brain abscess [Unknown]
  - Seizure [Unknown]

NARRATIVE: CASE EVENT DATE: 20110209
